FAERS Safety Report 9337690 (Version 1)
Quarter: 2013Q2

REPORT INFORMATION
  Report Type: Spontaneous
  Country: US (occurrence: US)
  Receive Date: 20130607
  Receipt Date: 20130607
  Transmission Date: 20140414
  Serious: Yes (Other)
  Sender: FDA-Public Use
  Company Number: US-ROXANE LABORATORIES, INC.-2013-RO-00903RO

PATIENT
  Age: 65 Year
  Sex: Male

DRUGS (7)
  1. HYDROMORPHONE [Suspect]
     Indication: PAIN
     Route: 048
  2. HYDROMORPHONE [Suspect]
     Route: 048
  3. DEXAMETHASONE [Suspect]
     Indication: PAIN
     Dosage: 8 MG
     Route: 048
  4. DEXAMETHASONE [Suspect]
     Indication: INFLAMMATION
  5. FENTANYL [Suspect]
     Indication: PAIN
     Route: 062
  6. GABAPENTIN [Suspect]
     Indication: PAIN
     Dosage: 900 MG
     Route: 048
  7. GABAPENTIN [Suspect]
     Dosage: 1800 MG
     Route: 048

REACTIONS (2)
  - Pain [Recovered/Resolved]
  - Oncologic complication [Recovered/Resolved]
